FAERS Safety Report 9012617 (Version 1)
Quarter: 2013Q1

REPORT INFORMATION
  Report Type: Spontaneous
  Country: FR (occurrence: FR)
  Receive Date: 20130114
  Receipt Date: 20130114
  Transmission Date: 20140127
  Serious: Yes (Life-Threatening, Hospitalization, Other)
  Sender: FDA-Public Use
  Company Number: FR-ELI_LILLY_AND_COMPANY-FR201301001732

PATIENT
  Age: 40 Year
  Sex: Male

DRUGS (8)
  1. ZYPREXA [Suspect]
     Dosage: 10 MG, QD
     Route: 048
  2. CLOPIXOL [Concomitant]
     Indication: ABNORMAL BEHAVIOUR
     Dosage: 45 MG, QD
  3. THERALENE [Concomitant]
     Indication: ABNORMAL BEHAVIOUR
     Dosage: 30 MG, EACH EVENING
     Dates: end: 20121019
  4. SEROPLEX [Concomitant]
     Dosage: 10 MG, QD
     Dates: start: 20121016, end: 20121019
  5. DEPAMIDE [Concomitant]
     Dosage: 600 MG, TID
     Dates: start: 20121009
  6. LOXAPAC [Concomitant]
     Indication: ABNORMAL BEHAVIOUR
     Dosage: 50 MG, BID
     Route: 030
     Dates: end: 20121016
  7. GAVISCON                                /SCH/ [Concomitant]
     Indication: GASTROOESOPHAGEAL REFLUX PROPHYLAXIS
     Dosage: 2 DF, TID
  8. NEXIUM [Concomitant]
     Indication: GASTROOESOPHAGEAL REFLUX PROPHYLAXIS
     Dosage: 40 MG, QD

REACTIONS (11)
  - Respiratory distress [Unknown]
  - Pneumonia aspiration [Recovered/Resolved]
  - Tachycardia [Unknown]
  - Hypotonia [Unknown]
  - Rectal ulcer [Unknown]
  - Agitation [Unknown]
  - Cognitive disorder [Unknown]
  - Tachypnoea [Unknown]
  - Hypernatraemia [Unknown]
  - Constipation [Unknown]
  - Somnolence [Unknown]
